FAERS Safety Report 4640689-5 (Version None)
Quarter: 2005Q2

REPORT INFORMATION
  Report Type: 
  Country: None (occurrence: None)
  Receive Date: 20050419
  Receipt Date: 20050406
  Transmission Date: 20051028
  Serious: Yes (Other)
  Sender: FDA-Public Use
  Company Number: 2005056453

PATIENT
  Age: 68 Year
  Sex: Female

DRUGS (4)
  1. DOXYCYCLINE [Suspect]
     Indication: GINGIVAL DISORDER
     Dosage: 40 MG (20 MG, 2 IN 1 D); AFTER 7 DAYS
     Dates: start: 20050201
  2. MULTIVITAMINS (ASCORBIC ACID, ERGOCALCIFEROL, FOLIC ACID, NICOTINAMIDE [Concomitant]
  3. ALL OTHER THERAPEUTIC PRODUCTS (ALL OTHER THERAPEUTIC PRODUCTS) [Concomitant]
  4. LANSOPRAZOLE [Concomitant]

REACTIONS (2)
  - COLITIS COLLAGENOUS [None]
  - DISEASE RECURRENCE [None]
